FAERS Safety Report 9350473 (Version 1)
Quarter: 2013Q2

REPORT INFORMATION
  Report Type: Spontaneous
  Country: US (occurrence: US)
  Receive Date: 20130617
  Receipt Date: 20130617
  Transmission Date: 20140414
  Serious: No
  Sender: FDA-Public Use
  Company Number: US-PFIZER INC-2013125102

PATIENT
  Age: 57 Year
  Sex: Female

DRUGS (4)
  1. LYRICA [Suspect]
     Indication: FIBROMYALGIA
     Dosage: 25 MG, 2X/DAY (BID)
  2. LYRICA [Suspect]
     Dosage: 50 MG, UNK
  3. AMBIEN [Concomitant]
     Dosage: 5 MG, 1X/DAY BEFORE BEDTIME (HS)
  4. DIAZEPAM [Concomitant]
     Dosage: 5 MG, 3X/DAY AS NEEDED (PRN)

REACTIONS (1)
  - Vision blurred [Recovered/Resolved]
